FAERS Safety Report 4471465-4 (Version None)
Quarter: 2004Q4

REPORT INFORMATION
  Report Type: 
  Country: None (occurrence: None)
  Receive Date: 20041006
  Receipt Date: 20040923
  Transmission Date: 20050328
  Serious: Yes (Life-Threatening)
  Sender: FDA-Public Use
  Company Number: 2004068306

PATIENT
  Age: 63 Year
  Sex: Male

DRUGS (6)
  1. SORTIS (ATORVASTATIN) [Suspect]
     Indication: HYPERLIPIDAEMIA
     Dosage: 20 MG (20 MG, 1 IN 1 D), ORAL
     Route: 048
     Dates: start: 20021220
  2. CLOPIDOGREL BISULFATE [Concomitant]
  3. RILUZOLE (RILUZOLE) [Concomitant]
  4. METFORMIN HYDROCHLORIDE (METFORMIN HYDROHLORIDE) [Concomitant]
  5. ALPRAZOLAM [Concomitant]
  6. CELECOXIB (CELECOXIB) [Concomitant]

REACTIONS (1)
  - AMYOTROPHIC LATERAL SCLEROSIS [None]
